FAERS Safety Report 14410892 (Version 1)
Quarter: 2018Q1

REPORT INFORMATION
  Report Type: Spontaneous
  Country: US (occurrence: US)
  Receive Date: 20180117
  Receipt Date: 20180117
  Transmission Date: 20180509
  Serious: No
  Sender: FDA-Public Use
  Company Number: None

PATIENT
  Age: 22 Year
  Sex: Male

DRUGS (1)
  1. EPCLUSA [Suspect]
     Active Substance: SOFOSBUVIR\VELPATASVIR

REACTIONS (7)
  - Abdominal pain upper [None]
  - Hypersomnia [None]
  - Insomnia [None]
  - Confusional state [None]
  - Withdrawal syndrome [None]
  - Nausea [None]
  - Increased appetite [None]

NARRATIVE: CASE EVENT DATE: 20180117
